FAERS Safety Report 16648229 (Version 3)
Quarter: 2019Q3

REPORT INFORMATION
  Report Type: Spontaneous
  Country: US (occurrence: US)
  Receive Date: 20190730
  Receipt Date: 20190812
  Transmission Date: 20191004
  Serious: No
  Sender: FDA-Public Use
  Company Number: US-PFIZER INC-2018421499

PATIENT
  Age: 57 Year
  Sex: Female
  Weight: 87.75 kg

DRUGS (4)
  1. RELPAX [Suspect]
     Active Substance: ELETRIPTAN HYDROBROMIDE
     Indication: MIGRAINE WITHOUT AURA
     Dosage: 50 MG, AS NEEDED (AS DIRECTED AT ONSET OF MIGRAINE AND MAY REPEAT AFTER 2 HOURS IF NEEDED)
     Route: 048
  2. METOCLOPRAMIDE. [Concomitant]
     Active Substance: METOCLOPRAMIDE
     Indication: VOMITING
     Dosage: 10 MG, AS NEEDED (4 X DAILY)
  3. RELPAX [Suspect]
     Active Substance: ELETRIPTAN HYDROBROMIDE
     Indication: STATUS MIGRAINOSUS
     Dosage: UNK, DAILY (HALF PILL)
  4. RELPAX [Suspect]
     Active Substance: ELETRIPTAN HYDROBROMIDE
     Indication: MIGRAINE
     Dosage: 40 MG, AS NEEDED (AS DIRECTED AT ONSET OF MIGRAINE AND MAY REPEAT AFTER 2 HOURS)
     Route: 048

REACTIONS (6)
  - Gait disturbance [Unknown]
  - Feeling abnormal [Unknown]
  - Intentional product misuse [Unknown]
  - Hunger [Unknown]
  - Vomiting [Unknown]
  - Intentional product use issue [Unknown]
